FAERS Safety Report 17985625 (Version 1)
Quarter: 2020Q3

REPORT INFORMATION
  Report Type: Spontaneous
  Country: JP (occurrence: JP)
  Receive Date: 20200706
  Receipt Date: 20200706
  Transmission Date: 20201103
  Serious: Yes (Other)
  Sender: FDA-Public Use
  Company Number: JP-SA-2020SA171040

PATIENT

DRUGS (5)
  1. MABCAMPATH [Suspect]
     Active Substance: ALEMTUZUMAB
     Dosage: 30MG
     Route: 041
     Dates: start: 20200629, end: 20200629
  2. MABCAMPATH [Suspect]
     Active Substance: ALEMTUZUMAB
     Dosage: 2ND WEEK
     Route: 041
     Dates: start: 20200623, end: 20200623
  3. MABCAMPATH [Suspect]
     Active Substance: ALEMTUZUMAB
     Dosage: 10MG
     Route: 041
     Dates: start: 20200625, end: 20200625
  4. MABCAMPATH [Suspect]
     Active Substance: ALEMTUZUMAB
     Indication: CHRONIC LYMPHOCYTIC LEUKAEMIA
     Dosage: 30MG
     Route: 041
     Dates: start: 20200701, end: 20200701
  5. MABCAMPATH [Suspect]
     Active Substance: ALEMTUZUMAB
     Dosage: 3MG
     Route: 041
     Dates: start: 20200624, end: 20200624

REACTIONS (3)
  - Cytomegalovirus infection [Not Recovered/Not Resolved]
  - Oropharyngeal pain [Not Recovered/Not Resolved]
  - Cough [Not Recovered/Not Resolved]

NARRATIVE: CASE EVENT DATE: 20200701
